FAERS Safety Report 16763820 (Version 1)
Quarter: 2019Q3

REPORT INFORMATION
  Report Type: Spontaneous
  Country: IL (occurrence: IL)
  Receive Date: 20190902
  Receipt Date: 20190902
  Transmission Date: 20191005
  Serious: Yes (Other)
  Sender: FDA-Public Use
  Company Number: PHHY2019IL201258

PATIENT
  Age: 40 Year
  Sex: Male

DRUGS (1)
  1. SIMULECT [Suspect]
     Active Substance: BASILIXIMAB
     Indication: RENAL TRANSPLANT
     Dosage: 20 MG, (DAY 0 AND DAY 4 TO TRANSPLANT)
     Route: 065

REACTIONS (2)
  - Oliguria [Recovering/Resolving]
  - Transplant rejection [Recovering/Resolving]
